FAERS Safety Report 13905650 (Version 1)
Quarter: 2017Q3

REPORT INFORMATION
  Report Type: Spontaneous
  Country: CH (occurrence: CH)
  Receive Date: 20170825
  Receipt Date: 20170825
  Transmission Date: 20171127
  Serious: Yes (Death, Hospitalization, Other)
  Sender: FDA-Public Use
  Company Number: CH-BAYER-2017-156519

PATIENT
  Age: 93 Year
  Sex: Male

DRUGS (6)
  1. CORDARONE [Concomitant]
     Active Substance: AMIODARONE HYDROCHLORIDE
     Dosage: 200 MG, Q3WK
  2. ELTROXIN [Concomitant]
     Active Substance: LEVOTHYROXINE
     Dosage: .05 MG, QD
  3. PERINDOPRIL ARGININE [Concomitant]
     Active Substance: PERINDOPRIL ARGININE
     Dosage: 5 MG, QD
  4. ISOKET [Concomitant]
     Active Substance: ISOSORBIDE DINITRATE
     Dosage: UNK, PRN
  5. BELOC ZOK [Concomitant]
     Active Substance: METOPROLOL SUCCINATE
  6. ASPIRIN CARDIO 100 MG [Suspect]
     Active Substance: ASPIRIN
     Dosage: 100 MG, QD
     Dates: end: 20170516

REACTIONS (7)
  - Decerebrate posture [Unknown]
  - Pupils unequal [Unknown]
  - Myoclonus [Unknown]
  - Subdural haematoma [Fatal]
  - Syncope [Recovered/Resolved]
  - Coma scale abnormal [Unknown]
  - Hemiparesis [Unknown]

NARRATIVE: CASE EVENT DATE: 20170516
